FAERS Safety Report 12695245 (Version 2)
Quarter: 2016Q4

REPORT INFORMATION
  Report Type: Spontaneous
  Country: US (occurrence: US)
  Receive Date: 20160829
  Receipt Date: 20161007
  Transmission Date: 20170207
  Serious: Yes (Hospitalization)
  Sender: FDA-Public Use
  Company Number: US-JNJFOC-20160816538

PATIENT
  Age: 72 Year
  Sex: Female

DRUGS (9)
  1. XOPENEX HFA [Concomitant]
     Active Substance: LEVALBUTEROL TARTRATE
     Dosage: 2 PUFFS
     Route: 055
     Dates: start: 20160308
  2. CYANOCOBALAMIN. [Concomitant]
     Active Substance: CYANOCOBALAMIN
     Route: 048
     Dates: start: 20160210
  3. TACROLIMUS. [Concomitant]
     Active Substance: TACROLIMUS
     Dosage: 0.1 (UNIT UNSPECIFIED)
     Route: 065
     Dates: start: 20160217
  4. STELARA [Suspect]
     Active Substance: USTEKINUMAB
     Indication: PSORIASIS
     Route: 058
     Dates: start: 20151112, end: 20160815
  5. NIFEDIPINE. [Concomitant]
     Active Substance: NIFEDIPINE
     Route: 048
     Dates: start: 20160208
  6. CLOBETASOL [Concomitant]
     Active Substance: CLOBETASOL
     Dosage: 0.05 (UNIT UNSPECIFIED)
     Route: 065
     Dates: start: 20160319
  7. NIFEDIPINE. [Concomitant]
     Active Substance: NIFEDIPINE
     Route: 048
     Dates: start: 20160212
  8. NIACIN. [Concomitant]
     Active Substance: NIACIN
     Route: 048
     Dates: start: 20160208
  9. TRIAMCINOLONE [Concomitant]
     Active Substance: TRIAMCINOLONE
     Dosage: 0.1 (UNIT UNSPECIFIED)
     Route: 065
     Dates: start: 20160218

REACTIONS (2)
  - Myocardial infarction [Recovered/Resolved with Sequelae]
  - Cardiac failure congestive [Unknown]

NARRATIVE: CASE EVENT DATE: 2016
